FAERS Safety Report 22521459 (Version 1)
Quarter: 2023Q2

REPORT INFORMATION
  Report Type: Spontaneous
  Country: US (occurrence: US)
  Receive Date: 20230605
  Receipt Date: 20230605
  Transmission Date: 20230721
  Serious: No
  Sender: FDA-Public Use
  Company Number: US-PFIZER INC-PV202300098527

PATIENT
  Sex: Male

DRUGS (1)
  1. AZULFIDINE [Suspect]
     Active Substance: SULFASALAZINE
     Indication: Crohn^s disease
     Dosage: UNK
     Route: 048
     Dates: start: 1994, end: 2008

REACTIONS (3)
  - Off label use [Unknown]
  - Drug ineffective for unapproved indication [Recovered/Resolved]
  - Condition aggravated [Recovered/Resolved]
